FAERS Safety Report 4313513-8 (Version None)
Quarter: 2004Q1

REPORT INFORMATION
  Report Type: 
  Country: None (occurrence: None)
  Receive Date: 20040304
  Receipt Date: 20040216
  Transmission Date: 20041129
  Serious: Yes (Hospitalization, Other)
  Sender: FDA-Public Use
  Company Number: US_010259388

PATIENT
  Sex: Female
  Weight: 59 kg

DRUGS (5)
  1. NPH ILETIN II (PORK) [Suspect]
     Indication: DIABETES MELLITUS
     Dosage: 32 U/IN THE MORNING
  2. LENTE ILETIN II (PORK) [Suspect]
     Indication: DIABETES MELLITUS
  3. HUMULIN 50/50 [Suspect]
     Indication: DIABETES MELLITUS
  4. ILETIN [Suspect]
     Indication: DIABETES MELLITUS
     Dates: start: 19740101
  5. REGULAR INSULIN [Suspect]

REACTIONS (6)
  - BLOOD GLUCOSE FLUCTUATION [None]
  - DIZZINESS [None]
  - GASTRIC DISORDER [None]
  - MEDICATION ERROR [None]
  - POLYMYALGIA RHEUMATICA [None]
  - THYROID DISORDER [None]
